FAERS Safety Report 14733032 (Version 1)
Quarter: 2018Q2

REPORT INFORMATION
  Report Type: Spontaneous
  Country: IT (occurrence: IT)
  Receive Date: 20180409
  Receipt Date: 20180409
  Transmission Date: 20180711
  Serious: Yes (Hospitalization, Other)
  Sender: FDA-Public Use
  Company Number: IT-ACCORD-061889

PATIENT
  Age: 49 Year
  Sex: Female

DRUGS (5)
  1. PACLITAXEL/PACLITAXEL LIPOSOME [Suspect]
     Active Substance: PACLITAXEL
     Indication: INVASIVE DUCTAL BREAST CARCINOMA
     Dosage: WEEKLY
  2. TRASTUZUMAB. [Suspect]
     Active Substance: TRASTUZUMAB
     Indication: INVASIVE DUCTAL BREAST CARCINOMA
     Dosage: WEEKLY, LOADING DOSE
  3. CAPECITABINE. [Suspect]
     Active Substance: CAPECITABINE
     Indication: BREAST CANCER METASTATIC
     Dosage: EVERY 21 DAYS
  4. ZOLEDRONIC ACID [Concomitant]
     Active Substance: ZOLEDRONIC ACID
     Route: 042
  5. TRASTUZUMAB. [Suspect]
     Active Substance: TRASTUZUMAB
     Indication: INVASIVE DUCTAL BREAST CARCINOMA
     Dosage: WEEKLY, MAINTENANCE DOSE.?LOADING DOSE OF 4 MG/KG FOLLOWED BY MAINTENANCE DOSE OF 2 MG/KG
     Route: 042
     Dates: start: 201207

REACTIONS (6)
  - Syncope [Unknown]
  - Weight decreased [Unknown]
  - Acute kidney injury [Unknown]
  - Hypersensitivity [Unknown]
  - Cardiogenic shock [Recovering/Resolving]
  - Asthenia [None]
